FAERS Safety Report 15448638 (Version 1)
Quarter: 2018Q3

REPORT INFORMATION
  Report Type: Spontaneous
  Country: US (occurrence: US)
  Receive Date: 20180929
  Receipt Date: 20180929
  Transmission Date: 20181010
  Serious: No
  Sender: FDA-Public Use
  Company Number: US-SA-2018SA269285

PATIENT
  Age: 54 Year
  Sex: Female
  Weight: 102.4 kg

DRUGS (2)
  1. WELCHOL [Suspect]
     Active Substance: COLESEVELAM HYDROCHLORIDE
     Indication: DIARRHOEA
     Dosage: 625 MG, QD
     Route: 048
     Dates: start: 201808, end: 201809
  2. WELCHOL [Suspect]
     Active Substance: COLESEVELAM HYDROCHLORIDE
     Dosage: 1250 UNK
     Route: 048
     Dates: start: 201809, end: 20180918

REACTIONS (4)
  - Off label use [Recovered/Resolved]
  - Nausea [Unknown]
  - Gastrointestinal pain [Unknown]
  - Influenza like illness [Unknown]

NARRATIVE: CASE EVENT DATE: 201809
